FAERS Safety Report 7451023-X (Version None)
Quarter: 2011Q2

REPORT INFORMATION
  Report Type: 
  Country: None (occurrence: None)
  Receive Date: 20110502
  Receipt Date: 20110426
  Transmission Date: 20111010
  Serious: Yes (Hospitalization)
  Sender: FDA-Public Use
  Company Number: JP-PFIZER INC-2011085074

PATIENT
  Age: 71 Year
  Sex: Female

DRUGS (9)
  1. MYSER [Concomitant]
  2. SUNITINIB MALATE [Suspect]
     Indication: RENAL CELL CARCINOMA
     Dosage: 25 MG, UNK
     Route: 048
     Dates: start: 20091016, end: 20110330
  3. INSIDE [Concomitant]
  4. EPADEL [Concomitant]
  5. OMEPRAZOLE [Concomitant]
  6. AZUNOL [Concomitant]
  7. BONALFA [Concomitant]
  8. LOXONIN [Concomitant]
  9. THYRADIN S [Concomitant]

REACTIONS (1)
  - HERPES ZOSTER [None]
